FAERS Safety Report 17577776 (Version 1)
Quarter: 2020Q1

REPORT INFORMATION
  Report Type: Report from Study
  Country: NL (occurrence: NL)
  Receive Date: 20200324
  Receipt Date: 20200324
  Transmission Date: 20200409
  Serious: Yes (Disabling)
  Sender: FDA-Public Use
  Company Number: NL-MYLANLABS-2020M1029691

PATIENT
  Age: 45 Year
  Sex: Male

DRUGS (2)
  1. AZATHIOPRINE. [Suspect]
     Active Substance: AZATHIOPRINE
     Indication: COLITIS ULCERATIVE
     Dosage: 50MG, 4X/D
     Route: 048
     Dates: start: 20100401
  2. REMICADE [Concomitant]
     Active Substance: INFLIXIMAB
     Dosage: 5MG/KG, 1X/8W
     Route: 042
     Dates: start: 20130208, end: 20160128

REACTIONS (2)
  - Splenomegaly [Recovered/Resolved]
  - Thrombocytopenia [Recovered/Resolved]

NARRATIVE: CASE EVENT DATE: 20131101
